FAERS Safety Report 16144225 (Version 1)
Quarter: 2019Q2

REPORT INFORMATION
  Report Type: Spontaneous
  Country: None (occurrence: NZ)
  Receive Date: 20190401
  Receipt Date: 20190401
  Transmission Date: 20190711
  Serious: Yes (Other)
  Sender: FDA-Public Use
  Company Number: NZ-POPULATION COUNCIL, INC.-2065088

PATIENT
  Sex: Female

DRUGS (1)
  1. JADELLE [Suspect]
     Active Substance: LEVONORGESTREL
     Route: 059

REACTIONS (3)
  - Product monitoring error [None]
  - Pregnancy with implant contraceptive [None]
  - Contraindicated product administered [None]

NARRATIVE: CASE EVENT DATE: 2017
